FAERS Safety Report 13726468 (Version 3)
Quarter: 2017Q3

REPORT INFORMATION
  Report Type: Spontaneous
  Country: FR (occurrence: FR)
  Receive Date: 20170707
  Receipt Date: 20170717
  Transmission Date: 20171127
  Serious: Yes (Hospitalization, Other)
  Sender: FDA-Public Use
  Company Number: FR-PFIZER INC-2017291215

PATIENT
  Age: 49 Year
  Sex: Male

DRUGS (7)
  1. RAMIPRIL. [Suspect]
     Active Substance: RAMIPRIL
     Indication: HYPERTENSION
     Dosage: 10 MG, DAILY
     Route: 048
     Dates: end: 20170528
  2. VOLTARENE [Interacting]
     Active Substance: DICLOFENAC SODIUM
     Indication: SCIATICA
     Dosage: UNK
     Route: 065
     Dates: start: 201704, end: 2017
  3. VOLTARENE [Interacting]
     Active Substance: DICLOFENAC SODIUM
     Dosage: 75 MG, 2X/DAY
     Route: 048
     Dates: start: 201705, end: 20170528
  4. PRAVASTATIN. [Concomitant]
     Active Substance: PRAVASTATIN
  5. BIPROFENID [Interacting]
     Active Substance: KETOPROFEN
     Indication: PROCEDURAL PAIN
     Dosage: 100 MG, 2X/DAY
     Route: 048
     Dates: start: 20170529, end: 20170529
  6. DOLIPRANE [Concomitant]
     Active Substance: ACETAMINOPHEN
     Dosage: UNK
     Dates: start: 201704
  7. PROPRANOLOL [Interacting]
     Active Substance: PROPRANOLOL HYDROCHLORIDE
     Dosage: 160 MG, DAILY

REACTIONS (5)
  - Disturbance in attention [Unknown]
  - Drug interaction [Unknown]
  - Acute kidney injury [Recovered/Resolved]
  - Hypotension [Unknown]
  - Hyperkalaemia [Recovering/Resolving]

NARRATIVE: CASE EVENT DATE: 20170530
